FAERS Safety Report 4417307-4 (Version None)
Quarter: 2004Q2

REPORT INFORMATION
  Report Type: 
  Country: None (occurrence: None)
  Receive Date: 20040629
  Receipt Date: 20031030
  Transmission Date: 20050107
  Serious: Yes (Hospitalization)
  Sender: FDA-Public Use
  Company Number: US_031198644

PATIENT
  Age: 88 Year
  Weight: 57 kg

DRUGS (2)
  1. HUMULIN 50/50 [Suspect]
     Indication: DIABETES MELLITUS
     Dates: start: 20030701, end: 20030101
  2. HUMALOG [Suspect]
     Indication: DIABETES MELLITUS
     Dates: start: 20030101

REACTIONS (3)
  - BLOOD GLUCOSE DECREASED [None]
  - BLOOD GLUCOSE INCREASED [None]
  - INJECTION SITE HAEMORRHAGE [None]
